FAERS Safety Report 21560489 (Version 1)
Quarter: 2022Q4

REPORT INFORMATION
  Report Type: Report from Study
  Country: US (occurrence: US)
  Receive Date: 20221107
  Receipt Date: 20221107
  Transmission Date: 20230112
  Serious: Yes (Hospitalization)
  Sender: FDA-Public Use
  Company Number: US-ABBVIE-4187719

PATIENT
  Sex: Male

DRUGS (1)
  1. RINVOQ [Suspect]
     Active Substance: UPADACITINIB
     Indication: Dermatitis
     Dosage: EXTENDED RELEASE??FORM STRENGTH 15MG??FREQUENCY TEXT  EVERY MORNING
     Route: 048

REACTIONS (3)
  - Diverticulitis [Unknown]
  - Malaise [Unknown]
  - Disease complication [Unknown]
